FAERS Safety Report 14324520 (Version 1)
Quarter: 2017Q4

REPORT INFORMATION
  Report Type: Spontaneous
  Country: FR (occurrence: FR)
  Receive Date: 20171226
  Receipt Date: 20171226
  Transmission Date: 20180321
  Serious: Yes (Life-Threatening)
  Sender: FDA-Public Use
  Company Number: FR-GUERBET-FR-20170652

PATIENT
  Age: 83 Year
  Sex: Male

DRUGS (4)
  1. HYPERIUM [Concomitant]
     Active Substance: RILMENIDINE PHOSPHATE
     Indication: PRODUCT USED FOR UNKNOWN INDICATION
     Route: 065
  2. CIBACENE [Concomitant]
     Active Substance: BENAZEPRIL HYDROCHLORIDE
     Indication: PRODUCT USED FOR UNKNOWN INDICATION
     Route: 065
  3. OPTIJECT 350 [Suspect]
     Active Substance: IOVERSOL
     Indication: ANGIOGRAM
     Route: 042
     Dates: start: 20171108, end: 20171108
  4. LOXEN (NICARDIPINE HYDROCHLORIDE) [Concomitant]
     Active Substance: NICARDIPINE HYDROCHLORIDE
     Indication: PRODUCT USED FOR UNKNOWN INDICATION
     Route: 065

REACTIONS (4)
  - Eyelid oedema [Not Recovered/Not Resolved]
  - Anaphylactoid reaction [Recovered/Resolved]
  - Erythema [Not Recovered/Not Resolved]
  - Hypersensitivity [Recovered/Resolved]

NARRATIVE: CASE EVENT DATE: 20171108
